FAERS Safety Report 15197199 (Version 4)
Quarter: 2018Q4

REPORT INFORMATION
  Report Type: Spontaneous
  Country: US (occurrence: US)
  Receive Date: 20180725
  Receipt Date: 20181126
  Transmission Date: 20190204
  Serious: Yes (Death, Hospitalization, Other)
  Sender: FDA-Public Use
  Company Number: US-ACTELION-A-NJ2018-175975

PATIENT
  Age: 69 Year
  Sex: Female

DRUGS (1)
  1. OPSUMIT [Suspect]
     Active Substance: MACITENTAN
     Indication: PULMONARY ARTERIAL HYPERTENSION
     Dosage: 10 MG, QD
     Route: 048
     Dates: start: 20160504, end: 20181110

REACTIONS (10)
  - Incoherent [Unknown]
  - Product dose omission [Recovered/Resolved]
  - Dementia [Fatal]
  - Fatigue [Unknown]
  - Asthenia [Fatal]
  - Hip fracture [Unknown]
  - Feeding disorder [Unknown]
  - Condition aggravated [Unknown]
  - Cardiac failure [Fatal]
  - Ankle fracture [Unknown]

NARRATIVE: CASE EVENT DATE: 20180309
